FAERS Safety Report 6588695-8 (Version None)
Quarter: 2010Q1

REPORT INFORMATION
  Report Type: 
  Country: None (occurrence: None)
  Receive Date: 20100218
  Receipt Date: 20100208
  Transmission Date: 20100710
  Serious: Yes (Hospitalization)
  Sender: FDA-Public Use
  Company Number: FR-SANOFI-AVENTIS-2010SA007069

PATIENT
  Age: 67 Year
  Sex: Female

DRUGS (14)
  1. KAYEXALATE [Suspect]
     Route: 048
     Dates: start: 20091221, end: 20091221
  2. LOVENOX [Suspect]
     Indication: PULMONARY EMBOLISM
     Route: 058
     Dates: start: 20091209, end: 20091220
  3. ESOMEPRAZOLE MAGNESIUM [Suspect]
     Indication: GASTRODUODENAL ULCER
     Route: 048
     Dates: start: 20091210
  4. PREVISCAN [Suspect]
     Route: 048
     Dates: start: 20091210, end: 20091210
  5. PREVISCAN [Suspect]
     Route: 048
     Dates: start: 20091212, end: 20091214
  6. PREVISCAN [Suspect]
     Route: 048
     Dates: start: 20091221, end: 20091223
  7. NOVONORM [Concomitant]
     Route: 048
  8. PLAVIX [Concomitant]
     Route: 048
  9. FLUTICASONE PROPIONATE/SALMETEROL [Concomitant]
     Route: 055
  10. CRESTOR [Concomitant]
     Route: 048
  11. LANTUS [Concomitant]
     Route: 058
  12. TAREG [Concomitant]
     Route: 048
  13. INIPOMP [Concomitant]
     Route: 048
  14. DAFALGAN [Concomitant]
     Route: 048

REACTIONS (1)
  - THROMBOCYTOPENIA [None]
